FAERS Safety Report 5768043-3 (Version None)
Quarter: 2008Q2

REPORT INFORMATION
  Report Type: 
  Country: None (occurrence: None)
  Receive Date: 20080612
  Receipt Date: 20071009
  Transmission Date: 20081010
  Serious: Yes (Other)
  Sender: FDA-Public Use
  Company Number: US-ASTRAZENECA-2007UW23506

PATIENT
  Age: 83 Year
  Sex: Female

DRUGS (3)
  1. FASLODEX [Suspect]
     Indication: BREAST CANCER
     Route: 030
     Dates: start: 20040101
  2. ARIMIDEX [Concomitant]
     Indication: BREAST CANCER
     Route: 048
     Dates: start: 20010101, end: 20030101
  3. AROMASIN [Concomitant]
     Indication: BREAST CANCER

REACTIONS (1)
  - BREAST CANCER RECURRENT [None]
